FAERS Safety Report 10657927 (Version 1)
Quarter: 2014Q4

REPORT INFORMATION
  Report Type: Spontaneous
  Country: FR (occurrence: FR)
  Receive Date: 20141217
  Receipt Date: 20141217
  Transmission Date: 20150529
  Serious: Yes (Death, Hospitalization, Other)
  Sender: FDA-Public Use
  Company Number: FR-ASTRAZENECA-2014SE95671

PATIENT
  Age: 21258 Day
  Sex: Male

DRUGS (10)
  1. ZAMUDOL [Suspect]
     Active Substance: TRAMADOL HYDROCHLORIDE
     Route: 048
     Dates: start: 20141016, end: 20141017
  2. SERESTA [Suspect]
     Active Substance: OXAZEPAM
     Indication: DELIRIUM TREMENS
     Dosage: 20 MG IN THE MORNING, 20 MG AT MIDDAY AND 50 MG IN THE EVENING
     Route: 048
     Dates: start: 20141016, end: 20141016
  3. SOLIAN [Suspect]
     Active Substance: AMISULPRIDE
     Route: 048
     Dates: end: 20141017
  4. VALIUM [Suspect]
     Active Substance: DIAZEPAM
     Route: 042
     Dates: start: 20141016, end: 20141016
  5. TIAPRIDAL [Suspect]
     Active Substance: TIAPRIDE HYDROCHLORIDE
     Route: 048
  6. PARKINANE [Suspect]
     Active Substance: TRIHEXYPHENIDYL HYDROCHLORIDE
     Route: 048
     Dates: end: 20141017
  7. PRINIVIL [Concomitant]
     Active Substance: LISINOPRIL
  8. NAROPEINE [Suspect]
     Active Substance: ROPIVACAINE HYDROCHLORIDE
     Route: 042
     Dates: start: 20141016, end: 20141017
  9. SUFENTA [Suspect]
     Active Substance: SUFENTANIL CITRATE
     Route: 042
     Dates: end: 20141017
  10. ZOLPIDEM [Suspect]
     Active Substance: ZOLPIDEM\ZOLPIDEM TARTRATE
     Route: 048
     Dates: end: 20141017

REACTIONS (1)
  - Cardio-respiratory arrest [Fatal]

NARRATIVE: CASE EVENT DATE: 20141017
